FAERS Safety Report 4774425-9 (Version None)
Quarter: 2005Q3

REPORT INFORMATION
  Report Type: 
  Country: None (occurrence: None)
  Receive Date: 20050921
  Receipt Date: 20050716
  Transmission Date: 20060218
  Serious: Yes (Other)
  Sender: FDA-Public Use
  Company Number: US-JNJFOC-20050703841

PATIENT
  Age: 86 Year
  Sex: Female

DRUGS (3)
  1. RAZADYNE ER [Suspect]
     Indication: DEMENTIA
     Route: 048
  2. REMINYL [Suspect]
     Indication: DEMENTIA
     Route: 048
  3. LOPRESSOR [Concomitant]
     Indication: HYPERTENSION

REACTIONS (5)
  - ABDOMINAL PAIN [None]
  - ACCIDENTAL OVERDOSE [None]
  - DRUG DISPENSING ERROR [None]
  - MEDICATION ERROR [None]
  - WEIGHT DECREASED [None]
